FAERS Safety Report 10158048 (Version 1)
Quarter: 2014Q2

REPORT INFORMATION
  Report Type: Spontaneous
  Country: US (occurrence: US)
  Receive Date: 20140507
  Receipt Date: 20140507
  Transmission Date: 20141212
  Serious: No
  Sender: FDA-Public Use
  Company Number: US-009507513-1405USA002379

PATIENT
  Sex: Female

DRUGS (1)
  1. AFRIN [Suspect]
     Indication: EPISTAXIS
     Dosage: UNK, BID
     Route: 045
     Dates: start: 20140422

REACTIONS (4)
  - Nasal discomfort [Unknown]
  - Poor quality sleep [Unknown]
  - Off label use [Unknown]
  - Drug prescribing error [Unknown]
